FAERS Safety Report 8075732-7 (Version None)
Quarter: 2012Q1

REPORT INFORMATION
  Report Type: 
  Country: None (occurrence: None)
  Receive Date: 20120127
  Receipt Date: 20120116
  Transmission Date: 20120608
  Serious: Yes (Other)
  Sender: FDA-Public Use
  Company Number: FR-JNJFOC-20120103162

PATIENT
  Sex: Female

DRUGS (3)
  1. REMICADE [Suspect]
     Route: 042
  2. REMICADE [Suspect]
     Indication: CROHN'S DISEASE
     Route: 042
     Dates: start: 20110101
  3. REMICADE [Suspect]
     Route: 042
     Dates: start: 20110101

REACTIONS (4)
  - PRURITUS [None]
  - INFUSION RELATED REACTION [None]
  - PRESYNCOPE [None]
  - CROHN'S DISEASE [None]
